FAERS Safety Report 17684326 (Version 6)
Quarter: 2022Q2

REPORT INFORMATION
  Report Type: Report from Study
  Country: ES (occurrence: ES)
  Receive Date: 20200420
  Receipt Date: 20220421
  Transmission Date: 20220721
  Serious: Yes (Hospitalization)
  Sender: FDA-Public Use
  Company Number: ES-002147023-NVSC2020ES074131

PATIENT
  Age: 90 Year
  Sex: Female

DRUGS (7)
  1. SERTRALINE [Interacting]
     Active Substance: SERTRALINE HYDROCHLORIDE
     Indication: Depression
     Dosage: 50 MILLIGRAM, QD, 50 MG, QD
     Route: 048
     Dates: start: 20190812, end: 20190925
  2. QUETIAPINE [Interacting]
     Active Substance: QUETIAPINE
     Indication: Atrial fibrillation
     Dosage: 25 MILLIGRAM, QD, 25 MG, QD
     Route: 048
     Dates: start: 20160817
  3. FUROSEMIDE [Interacting]
     Active Substance: FUROSEMIDE
     Indication: Cardiac failure
     Dosage: 120 MILLIGRAM, QD, 120 MG, QD
     Route: 048
     Dates: start: 201909, end: 20190925
  4. EPLERENONE [Interacting]
     Active Substance: EPLERENONE
     Indication: Cardiac failure
     Dosage: 25 MILLIGRAM, QD, 25 MG, QD
     Route: 048
     Dates: start: 201904, end: 20190925
  5. HYDROCHLOROTHIAZIDE [Interacting]
     Active Substance: HYDROCHLOROTHIAZIDE
     Indication: Cardiac failure
     Dosage: 12.5 MILLIGRAM, QD, 12.5 MG, QD
     Route: 048
     Dates: start: 2015, end: 20190925
  6. EPLERENONE [Interacting]
     Active Substance: EPLERENONE
     Indication: Cardiac failure
     Dosage: 25 MILLIGRAM
     Route: 048
     Dates: start: 201904, end: 20190925
  7. BISOPROLOL [Concomitant]
     Active Substance: BISOPROLOL
     Indication: Atrial fibrillation
     Dosage: 2.5 MILLIGRAM, QD
     Route: 048
     Dates: start: 20160817

REACTIONS (2)
  - Hyponatraemia [Recovered/Resolved]
  - Drug interaction [Unknown]

NARRATIVE: CASE EVENT DATE: 20190925
